FAERS Safety Report 12881985 (Version 1)
Quarter: 2016Q4

REPORT INFORMATION
  Report Type: Report from Study
  Country: IQ (occurrence: IQ)
  Receive Date: 20161025
  Receipt Date: 20161025
  Transmission Date: 20170207
  Serious: Yes (Hospitalization, Other)
  Sender: FDA-Public Use
  Company Number: PHHY2016IQ085404

PATIENT
  Sex: Female

DRUGS (1)
  1. TASIGNA [Suspect]
     Active Substance: NILOTINIB
     Indication: CHRONIC MYELOID LEUKAEMIA
     Dosage: 800 MG, QD (PER DAY)
     Route: 048
     Dates: start: 201606, end: 201609

REACTIONS (7)
  - Fatigue [Recovered/Resolved]
  - Tremor [Unknown]
  - Dizziness [Recovered/Resolved]
  - Anaemia [Recovering/Resolving]
  - Decreased appetite [Not Recovered/Not Resolved]
  - Hyperglycaemia [Not Recovered/Not Resolved]
  - Loss of consciousness [Recovered/Resolved]
